FAERS Safety Report 15581540 (Version 1)
Quarter: 2018Q4

REPORT INFORMATION
  Report Type: Spontaneous
  Country: GB (occurrence: GB)
  Receive Date: 20181105
  Receipt Date: 20181105
  Transmission Date: 20190205
  Serious: Yes (Other)
  Sender: FDA-Public Use
  Company Number: GB-COLGATE PALMOLIVE COMPANY-20181002587

PATIENT
  Age: 27 Year
  Sex: Female
  Weight: 73.02 kg

DRUGS (3)
  1. PARACETAMOL [Concomitant]
     Active Substance: ACETAMINOPHEN
  2. PEROXYL MOUTHWASH [Suspect]
     Active Substance: HYDROGEN PEROXIDE
     Indication: TOOTH DISCOLOURATION
     Dosage: 2 DF, QD
     Route: 048
     Dates: start: 201807, end: 201807
  3. CERAZETTE [DESOGESTREL] [Concomitant]
     Active Substance: DESOGESTREL

REACTIONS (3)
  - Confusional state [Recovered/Resolved]
  - Memory impairment [Recovered/Resolved]
  - Product use issue [Unknown]

NARRATIVE: CASE EVENT DATE: 201807
